FAERS Safety Report 24047666 (Version 1)
Quarter: 2024Q3

REPORT INFORMATION
  Report Type: Spontaneous
  Country: CN (occurrence: None)
  Receive Date: 20240703
  Receipt Date: 20240703
  Transmission Date: 20241017
  Serious: Yes (Other)
  Sender: ASTRAZENECA
  Company Number: 2024A148669

PATIENT
  Age: 20016 Day
  Sex: Male
  Weight: 78 kg

DRUGS (1)
  1. OSIMERTINIB MESYLATE [Suspect]
     Active Substance: OSIMERTINIB MESYLATE
     Indication: Lung neoplasm malignant
     Route: 048
     Dates: start: 20240501, end: 20240606

REACTIONS (2)
  - Hepatic function abnormal [Unknown]
  - Hepatic failure [Unknown]

NARRATIVE: CASE EVENT DATE: 20240606
